FAERS Safety Report 21731983 (Version 1)
Quarter: 2022Q4

REPORT INFORMATION
  Report Type: Spontaneous
  Country: IN (occurrence: IN)
  Receive Date: 20221215
  Receipt Date: 20221215
  Transmission Date: 20230113
  Serious: Yes (Death, Hospitalization, Other)
  Sender: FDA-Public Use
  Company Number: IN-drreddys-LIT/IND/22/0158199

PATIENT
  Age: 55 Year
  Sex: Female

DRUGS (9)
  1. REMDESIVIR [Suspect]
     Active Substance: REMDESIVIR
     Indication: COVID-19
     Dosage: WITH A LOADING DOSE OF 200 MG, FOLLOWED BY 100 MG DAILY FOR 5 DAYS
     Route: 042
  2. AMPHOTERICIN B [Suspect]
     Active Substance: AMPHOTERICIN B
     Indication: Sinusitis fungal
     Dosage: IN 5 PERCENT GLUCOSE (DEXTROSE)
     Route: 041
  3. POSACONAZOLE [Suspect]
     Active Substance: POSACONAZOLE
     Indication: Sinusitis fungal
  4. PIPERACILLIN SODIUM\TAZOBACTAM SODIUM [Suspect]
     Active Substance: PIPERACILLIN SODIUM\TAZOBACTAM SODIUM
     Indication: COVID-19
     Route: 042
  5. METHYLPREDNISOLONE [Suspect]
     Active Substance: METHYLPREDNISOLONE
     Indication: COVID-19
     Route: 042
  6. UNSPECIFIED INGREDIENT [Suspect]
     Active Substance: UNSPECIFIED INGREDIENT
     Indication: COVID-19
     Route: 058
  7. UNSPECIFIED INGREDIENT [Suspect]
     Active Substance: UNSPECIFIED INGREDIENT
     Indication: Sinusitis fungal
  8. INSULIN HUMAN [Suspect]
     Active Substance: INSULIN HUMAN
     Indication: Blood glucose fluctuation
     Dosage: TITRATED ACCORDING TO BLOOD SUGAR VALUES
  9. INSULIN HUMAN [Suspect]
     Active Substance: INSULIN HUMAN
     Indication: Sinusitis fungal

REACTIONS (6)
  - Infection [Fatal]
  - Sinusitis fungal [Unknown]
  - Mucormycosis [Unknown]
  - Lung disorder [Unknown]
  - Pulmonary mucormycosis [Unknown]
  - Klebsiella infection [Unknown]
